FAERS Safety Report 10357463 (Version 1)
Quarter: 2014Q3

REPORT INFORMATION
  Report Type: Spontaneous
  Country: US (occurrence: US)
  Receive Date: 20140801
  Receipt Date: 20140801
  Transmission Date: 20150326
  Serious: No
  Sender: FDA-Public Use
  Company Number: US-ASTRAZENECA-2014SE53296

PATIENT
  Age: 64 Year
  Sex: Male

DRUGS (3)
  1. LITHIUM [Concomitant]
     Active Substance: LITHIUM CARBONATE
  2. ZYPREXA [Concomitant]
     Active Substance: OLANZAPINE
  3. SEROQUEL [Suspect]
     Active Substance: QUETIAPINE FUMARATE
     Indication: BIPOLAR DISORDER
     Route: 048

REACTIONS (4)
  - Memory impairment [Unknown]
  - Anger [Unknown]
  - Abnormal behaviour [Unknown]
  - Incorrect product storage [Unknown]
